FAERS Safety Report 5038095-7 (Version None)
Quarter: 2006Q2

REPORT INFORMATION
  Report Type: 
  Country: None (occurrence: None)
  Receive Date: 20060622
  Receipt Date: 20060602
  Transmission Date: 20061013
  Serious: Yes (Hospitalization)
  Sender: FDA-Public Use
  Company Number: GBR-2006-0002332

PATIENT
  Age: 74 Year
  Sex: Male

DRUGS (11)
  1. OXYCONTIN [Suspect]
     Dosage: ORAL
     Route: 048
  2. LORAZEPAM [Suspect]
     Indication: ANXIETY
     Dosage: 1 MG, DAILY, ORAL
     Route: 048
  3. EQUANIL [Suspect]
     Indication: ANXIETY
     Dosage: 1 INJ. DAILY, INTRAMUSCULAR
     Route: 030
  4. NEURONTIN [Suspect]
     Indication: PSYCHOTIC DISORDER
     Dosage: 400 MG, DAILY, ORAL
     Route: 048
  5. RISPERIDONE [Suspect]
     Indication: PSYCHOTIC DISORDER
     Dosage: 1 MG, DAILY, ORAL
     Route: 048
  6. CARVEDILOL [Concomitant]
  7. COZAAR [Concomitant]
  8. PRAVASTATIN [Concomitant]
  9. LASIX [Concomitant]
  10. AMLODIPINE BESYLATE [Concomitant]
  11. XATRAL (ALFUZOSIN) [Concomitant]

REACTIONS (7)
  - APNOEA [None]
  - BLADDER DISTENSION [None]
  - CONFUSIONAL STATE [None]
  - DISORIENTATION [None]
  - DIZZINESS [None]
  - FAECALOMA [None]
  - SOMNOLENCE [None]
